FAERS Safety Report 6286844-2 (Version None)
Quarter: 2009Q3

REPORT INFORMATION
  Report Type: 
  Country: None (occurrence: None)
  Receive Date: 20090727
  Receipt Date: 20090727
  Transmission Date: 20100115
  Serious: Yes (Other)
  Sender: FDA-Public Use
  Company Number: None

PATIENT
  Age: 21 Year
  Sex: Male
  Weight: 82.1011 kg

DRUGS (2)
  1. DEPAKOTE ER [Suspect]
     Indication: EPILEPSY
     Dosage: PO BID
     Route: 048
     Dates: start: 20090130
  2. KEPPRA [Suspect]
     Indication: EPILEPSY
     Dosage: PO BID
     Route: 048
     Dates: start: 20090130

REACTIONS (1)
  - UNEVALUABLE EVENT [None]
